FAERS Safety Report 8815951 (Version 2)
Quarter: 2012Q4

REPORT INFORMATION
  Report Type: Report from Study
  Country: US (occurrence: US)
  Receive Date: 20120928
  Receipt Date: 20121017
  Transmission Date: 20130627
  Serious: Yes (Life-Threatening, Other)
  Sender: FDA-Public Use
  Company Number: US-ROCHE-1132789

PATIENT
  Age: 46 Year
  Sex: Female
  Weight: 71.36 kg

DRUGS (4)
  1. BEVACIZUMAB [Suspect]
     Indication: COLON CANCER STAGE II
     Dosage: 5mg/kg over 30-90 min on day1 (Arm B:Cycle =2 weeks, 12cycles), after completion of 12 cylce:mg/kg o
     Route: 042
     Dates: start: 20060517
  2. 5-FLUOROURACIL [Suspect]
     Indication: COLON CANCER STAGE II
     Dosage: Arm B: Cycle = 2 weeks, 12cycles:400 mg/m2 IV bolus on day 1, followed by 5FU 2.4 gm/m2 CIV over 46
     Route: 042
     Dates: start: 20060517
  3. LEUCOVORIN [Suspect]
     Indication: COLON CANCER STAGE II
     Dosage: Arm B: Cycle = 2 weeks, 12 cycles:400 mg/m2 IV over 2 hrs on day1, date of last dose prior to SAE:26
     Route: 042
     Dates: start: 20060517
  4. OXALIPLATIN [Suspect]
     Indication: COLON CANCER STAGE II
     Dosage: Arm B: Cycle = 2 weeks, 12 cycles:85 mg/m2 IV over 2 hrs on day1, date of last dose of prior SAE:28/
     Route: 042
     Dates: start: 20060517

REACTIONS (2)
  - Lymphocyte count decreased [Recovered/Resolved]
  - Sinus tachycardia [Recovered/Resolved]
